FAERS Safety Report 4439074-0 (Version None)
Quarter: 2004Q3

REPORT INFORMATION
  Report Type: 
  Country: None (occurrence: None)
  Receive Date: 20040901
  Receipt Date: 20040826
  Transmission Date: 20050211
  Serious: Yes (Hospitalization)
  Sender: FDA-Public Use
  Company Number: FR-GLAXOSMITHKLINE-B0343813A

PATIENT
  Age: 78 Year
  Sex: Female

DRUGS (16)
  1. FORTUM [Suspect]
     Indication: INFECTED SKIN ULCER
     Dosage: 2G THREE TIMES PER DAY
     Route: 042
     Dates: start: 20040409, end: 20040423
  2. CIPROFLOXACIN [Suspect]
     Indication: INFECTED SKIN ULCER
     Dosage: 500MG TWICE PER DAY
     Route: 048
     Dates: start: 20040409, end: 20040423
  3. FUCIDINE CAP [Suspect]
     Indication: INFECTED SKIN ULCER
     Dosage: 500MG THREE TIMES PER DAY
     Route: 048
     Dates: start: 20040409, end: 20040423
  4. PYOSTACINE [Suspect]
     Indication: INFECTED SKIN ULCER
     Dosage: 1000MG THREE TIMES PER DAY
     Route: 048
     Dates: start: 20040409, end: 20040419
  5. ZYLORIC [Concomitant]
     Dosage: 100MG TWICE PER DAY
     Route: 048
  6. LASIX [Concomitant]
     Indication: ESSENTIAL HYPERTENSION
     Dosage: 80MG PER DAY
     Route: 048
     Dates: start: 20040406
  7. SKENAN LP [Concomitant]
     Dosage: 20MG TWICE PER DAY
     Route: 048
     Dates: start: 20040406
  8. MORPHINE SULFATE [Concomitant]
     Route: 048
     Dates: start: 20040407
  9. MOTILIUM [Concomitant]
     Route: 048
     Dates: start: 20040410
  10. GAVISCON [Concomitant]
     Route: 048
     Dates: start: 20040408
  11. TRANXENE 5 [Concomitant]
     Dosage: 5MG PER DAY
     Route: 048
     Dates: start: 20040405
  12. TENORMIN [Concomitant]
     Dosage: 50MG PER DAY
     Route: 048
     Dates: start: 20040406
  13. TRIATEC [Concomitant]
     Dosage: 2.5MG PER DAY
     Route: 048
     Dates: start: 20040406
  14. ATHYMIL [Concomitant]
     Dosage: 1TAB PER DAY
     Route: 048
  15. LEVOTHYROXINE SODIUM [Concomitant]
     Dosage: 50MCG PER DAY
     Route: 048
  16. LOVENOX [Concomitant]
     Route: 058
     Dates: start: 20040405

REACTIONS (3)
  - EOSINOPHIL COUNT INCREASED [None]
  - RASH PAPULAR [None]
  - RASH VESICULAR [None]
